FAERS Safety Report 6609227-1 (Version None)
Quarter: 2010Q1

REPORT INFORMATION
  Report Type: 
  Country: None (occurrence: None)
  Receive Date: 20100224
  Receipt Date: 20100106
  Transmission Date: 20100710
  Serious: Yes (Hospitalization)
  Sender: FDA-Public Use
  Company Number: CIB09000012

PATIENT
  Age: 47 Year
  Sex: Female
  Weight: 64.9 kg

DRUGS (1)
  1. SECRET INVISIBLE SOLID A-P/DEO, ROCK STAR ROSE (ALUMINUM ZIRCONIUM TRI [Suspect]
     Dosage: TOPICAL
     Route: 061
     Dates: end: 20091011

REACTIONS (11)
  - ACNE [None]
  - APPLICATION SITE PAIN [None]
  - AXILLARY MASS [None]
  - AXILLARY PAIN [None]
  - CELLULITIS [None]
  - ERYTHEMA [None]
  - HYPONATRAEMIA [None]
  - PAIN OF SKIN [None]
  - SKIN BURNING SENSATION [None]
  - SKIN WARM [None]
  - SUBCUTANEOUS ABSCESS [None]
